FAERS Safety Report 8458127-3 (Version None)
Quarter: 2012Q2

REPORT INFORMATION
  Report Type: 
  Country: None (occurrence: None)
  Receive Date: 20120622
  Receipt Date: 20120612
  Transmission Date: 20120825
  Serious: Yes (Hospitalization, Other)
  Sender: FDA-Public Use
  Company Number: US-JNJFOC-20120606218

PATIENT
  Sex: Male
  Weight: 98.88 kg

DRUGS (11)
  1. RISPERIDONE [Suspect]
     Indication: SCHIZOAFFECTIVE DISORDER
     Route: 048
     Dates: start: 20120601
  2. LISINOPRIL [Concomitant]
     Indication: HYPERTENSION
     Route: 048
     Dates: start: 20100101
  3. RISPERDAL [Suspect]
     Indication: SCHIZOAFFECTIVE DISORDER
     Route: 048
     Dates: start: 20120505, end: 20120601
  4. RISPERDAL [Suspect]
     Indication: SCHIZOPHRENIA
     Route: 048
     Dates: start: 20120505, end: 20120601
  5. HALDOL [Suspect]
     Indication: SCHIZOAFFECTIVE DISORDER
     Route: 030
     Dates: start: 20120501, end: 20120501
  6. DEPAKOTE [Concomitant]
     Indication: SCHIZOAFFECTIVE DISORDER
     Route: 065
     Dates: start: 20120505
  7. RISPERDAL CONSTA [Suspect]
     Indication: SCHIZOPHRENIA
     Route: 030
     Dates: start: 20120501
  8. DEPAKOTE [Concomitant]
     Indication: SCHIZOPHRENIA
     Route: 065
     Dates: start: 20120505
  9. HALDOL [Suspect]
     Indication: SCHIZOPHRENIA
     Route: 030
     Dates: start: 20120501, end: 20120501
  10. RISPERDAL CONSTA [Suspect]
     Indication: SCHIZOAFFECTIVE DISORDER
     Route: 030
     Dates: start: 20120501
  11. RISPERIDONE [Suspect]
     Indication: SCHIZOPHRENIA
     Route: 048
     Dates: start: 20120601

REACTIONS (4)
  - GAIT DISTURBANCE [None]
  - STEREOTYPY [None]
  - CRYING [None]
  - MUSCULOSKELETAL STIFFNESS [None]
